FAERS Safety Report 14215889 (Version 2)
Quarter: 2018Q3

REPORT INFORMATION
  Report Type: Report from Study
  Country: DE (occurrence: DE)
  Receive Date: 20171122
  Receipt Date: 20180705
  Transmission Date: 20181010
  Serious: Yes (Hospitalization)
  Sender: FDA-Public Use
  Company Number: PHHY2017DE137956

PATIENT
  Sex: Male
  Weight: 128 kg

DRUGS (14)
  1. COSENTYX [Suspect]
     Active Substance: SECUKINUMAB
     Dosage: 150 MG, PER APPLICATION (ONCE)
     Route: 065
     Dates: start: 20170807
  2. RAMIPRIL. [Concomitant]
     Active Substance: RAMIPRIL
     Indication: HYPERTENSION
     Dosage: 10 MG, QD
     Route: 048
     Dates: start: 20130701
  3. COSENTYX [Suspect]
     Active Substance: SECUKINUMAB
     Dosage: 150 MG, PER APPLICATION (ONCE)
     Route: 065
     Dates: start: 20170817
  4. CELECOXIB. [Concomitant]
     Active Substance: CELECOXIB
     Indication: ANKYLOSING SPONDYLITIS
     Dosage: 1 DF (400 MG), BID (1?0?1)
     Route: 048
     Dates: start: 20170613, end: 20170909
  5. ASPIRIN. [Concomitant]
     Active Substance: ASPIRIN
     Indication: ANKYLOSING SPONDYLITIS
     Dosage: 500 MG, PRN
     Route: 048
     Dates: start: 2015, end: 20170714
  6. ATORVASTATIN [Concomitant]
     Active Substance: ATORVASTATIN
     Indication: HYPERCHOLESTEROLAEMIA
     Dosage: 10 MG, QD
     Route: 048
     Dates: start: 201307
  7. TRAZODONE [Concomitant]
     Active Substance: TRAZODONE HYDROCHLORIDE
     Indication: DEPRESSION
     Dosage: 100 MG, QD
     Route: 048
     Dates: start: 20151101
  8. COSENTYX [Suspect]
     Active Substance: SECUKINUMAB
     Dosage: 150 MG, PER APPLICATION (ONCE)
     Route: 065
     Dates: start: 20170821
  9. COSENTYX [Suspect]
     Active Substance: SECUKINUMAB
     Dosage: 150 MG, PER APPLICATION (ONCE)
     Route: 065
     Dates: start: 20170829
  10. NOVALGIN (METAMIZOLE SODIUM) [Concomitant]
     Active Substance: METAMIZOLE SODIUM
     Indication: ANKYLOSING SPONDYLITIS
     Dosage: 500 MG, QID (2?2?2?2)
     Route: 048
     Dates: start: 20170613
  11. ESOMEPRAZOLE [Concomitant]
     Active Substance: ESOMEPRAZOLE
     Indication: GASTROOESOPHAGEAL REFLUX PROPHYLAXIS
     Dosage: 40 MG, QD
     Route: 048
     Dates: start: 20170601
  12. ESCITALOPRAM [Concomitant]
     Active Substance: ESCITALOPRAM OXALATE
     Indication: DEPRESSION
     Dosage: 5 MG, QD, 1?0?0
     Route: 048
     Dates: start: 20151101
  13. COSENTYX [Suspect]
     Active Substance: SECUKINUMAB
     Indication: ANKYLOSING SPONDYLITIS
     Dosage: 150 MG, PER APPLICATION (ONCE)
     Route: 065
     Dates: start: 20170731, end: 20170731
  14. CHOLECALCIFEROL [Concomitant]
     Active Substance: CHOLECALCIFEROL
     Indication: VITAMIN D DEFICIENCY
     Dosage: 1000 IU, QD
     Route: 048
     Dates: start: 20170613

REACTIONS (20)
  - Jaundice [Unknown]
  - Pancreatic fibrosis [Unknown]
  - Abdominal wall haematoma [Unknown]
  - Mesenteric venous occlusion [Unknown]
  - Metastases to nervous system [Unknown]
  - Metastases to liver [Unknown]
  - Gastric polyps [Unknown]
  - Chronic gastritis [Unknown]
  - Gamma-glutamyltransferase increased [Unknown]
  - Alanine aminotransferase increased [Unknown]
  - Cholestasis [Unknown]
  - Pancreatic disorder [Unknown]
  - Cholelithiasis [Unknown]
  - Pancreatic carcinoma [Recovered/Resolved]
  - Blood bilirubin increased [Unknown]
  - Gastrointestinal stromal tumour [Unknown]
  - Aspartate aminotransferase increased [Unknown]
  - Portal vein occlusion [Unknown]
  - Blood alkaline phosphatase increased [Unknown]
  - Connective tissue disorder [Unknown]

NARRATIVE: CASE EVENT DATE: 20170904
